FAERS Safety Report 21044006 (Version 1)
Quarter: 2022Q3

REPORT INFORMATION
  Report Type: Spontaneous
  Country: JP (occurrence: JP)
  Receive Date: 20220705
  Receipt Date: 20220705
  Transmission Date: 20221027
  Serious: Yes (Other)
  Sender: FDA-Public Use
  Company Number: JP-MACLEODS PHARMACEUTICALS US LTD-MAC2022036316

PATIENT

DRUGS (2)
  1. TRIAMCINOLONE ACETONIDE [Suspect]
     Active Substance: TRIAMCINOLONE ACETONIDE
     Indication: Trigger finger
     Dosage: 5 MILLIGRAM, SINGLE (INJECTION)
     Route: 065
  2. LIDOCAINE [Concomitant]
     Active Substance: LIDOCAINE
     Indication: Trigger finger
     Dosage: 0.125 MILLILITER
     Route: 065

REACTIONS (1)
  - Infective tenosynovitis [Recovered/Resolved]
